FAERS Safety Report 4904031-4 (Version None)
Quarter: 2006Q1

REPORT INFORMATION
  Report Type: 
  Country: None (occurrence: None)
  Receive Date: 20060208
  Receipt Date: 20031218
  Transmission Date: 20060701
  Serious: No
  Sender: FDA-Public Use
  Company Number: US-GLAXOSMITHKLINE-A0493022A

PATIENT
  Sex: Female

DRUGS (3)
  1. PAXIL [Suspect]
     Indication: PANIC ATTACK
     Dosage: 20MG PER DAY
     Route: 048
     Dates: start: 19971007
  2. BUSPAR [Concomitant]
     Indication: DRUG USE FOR UNKNOWN INDICATION
     Dosage: 10MG THREE TIMES PER DAY
     Route: 065
     Dates: start: 19980505
  3. RESTORIL [Concomitant]
     Indication: INSOMNIA
     Dosage: 15MG AT NIGHT
     Route: 065
     Dates: start: 19980505

REACTIONS (1)
  - DRUG WITHDRAWAL SYNDROME [None]
